FAERS Safety Report 5761776-4 (Version None)
Quarter: 2008Q2

REPORT INFORMATION
  Report Type: 
  Country: None (occurrence: None)
  Receive Date: 20080606
  Receipt Date: 20080526
  Transmission Date: 20081010
  Serious: Yes (Other)
  Sender: FDA-Public Use
  Company Number: KR-PFIZER INC-2008045118

PATIENT
  Sex: Female

DRUGS (2)
  1. LYRICA [Suspect]
     Indication: POST HERPETIC NEURALGIA
     Route: 048
  2. STILNOX [Concomitant]
     Indication: INSOMNIA
     Route: 048

REACTIONS (4)
  - ARRHYTHMIA [None]
  - ERYTHEMA [None]
  - MEDICATION ERROR [None]
  - PRURITUS [None]
